FAERS Safety Report 25908659 (Version 1)
Quarter: 2025Q4

REPORT INFORMATION
  Report Type: Report from Study
  Country: EU (occurrence: EU)
  Receive Date: 20251010
  Receipt Date: 20251010
  Transmission Date: 20260117
  Serious: Yes (Hospitalization, Other)
  Sender: ABBVIE
  Company Number: EU-ABBVIE-6440367

PATIENT
  Age: 64 Year
  Sex: Female
  Weight: 75 kg

DRUGS (9)
  1. SKYRIZI [Suspect]
     Active Substance: RISANKIZUMAB-RZAA
     Indication: Colitis ulcerative
     Dosage: FOA: SOLUTION FOR INJECTION IN CARTRIDGE?LAST ADMIN DATE: 2025
     Route: 058
     Dates: start: 202503
  2. SKYRIZI [Suspect]
     Active Substance: RISANKIZUMAB-RZAA
     Dosage: FOA: SOLUTION FOR INJECTION IN CARTRIDGE
     Route: 058
     Dates: start: 20250414
  3. OPIPRAMOL [Concomitant]
     Active Substance: OPIPRAMOL
     Indication: Sleep disorder
     Route: 048
     Dates: start: 2022
  4. budesonide cr [Concomitant]
     Indication: Product used for unknown indication
     Dosage: ORAL+LOCAL
     Route: 048
  5. BUPROPION HYDROCHLORIDE [Concomitant]
     Active Substance: BUPROPION HYDROCHLORIDE
     Indication: Product used for unknown indication
  6. ENTYVIO [Concomitant]
     Active Substance: VEDOLIZUMAB
     Indication: Product used for unknown indication
  7. STELARA [Concomitant]
     Active Substance: USTEKINUMAB
     Indication: Product used for unknown indication
     Dates: start: 20220321, end: 20250331
  8. Iodine;Levothyroxine [Concomitant]
     Indication: Product used for unknown indication
     Dosage: DOSE STRENGTH: 0.075+0.15 MG TABLETS - 1 TABLETS
  9. OPIPRAMOL [Concomitant]
     Active Substance: OPIPRAMOL
     Indication: Product used for unknown indication
     Route: 048

REACTIONS (37)
  - Liver disorder [Not Recovered/Not Resolved]
  - Gallbladder disorder [Not Recovered/Not Resolved]
  - Myalgia [Not Recovered/Not Resolved]
  - Chills [Not Recovered/Not Resolved]
  - Inflammation [Not Recovered/Not Resolved]
  - Granulomatous liver disease [Not Recovered/Not Resolved]
  - Arthralgia [Not Recovered/Not Resolved]
  - Diarrhoea [Unknown]
  - Abdominal pain [Unknown]
  - Dizziness [Unknown]
  - Headache [Unknown]
  - Asthenia [Unknown]
  - Syphilis [Unknown]
  - Dyspnoea [Unknown]
  - Pyrexia [Unknown]
  - Night sweats [Unknown]
  - Weight decreased [Unknown]
  - Cough [Unknown]
  - Productive cough [Unknown]
  - Palpitations [Unknown]
  - Nausea [Unknown]
  - Vomiting [Unknown]
  - Liver disorder [Unknown]
  - Cholangitis sclerosing [Unknown]
  - Hepatic steatosis [Unknown]
  - Hepatic fibrosis [Unknown]
  - Bleeding time prolonged [Unknown]
  - Goitre [Unknown]
  - Panic attack [Unknown]
  - Spinal osteoarthritis [Unknown]
  - Throat clearing [Unknown]
  - Chronic inflammatory response syndrome [Unknown]
  - Steatohepatitis [Unknown]
  - Immune thrombocytopenia [Unknown]
  - C-reactive protein [Unknown]
  - Hypothyroidism [Unknown]
  - Splenomegaly [Unknown]

NARRATIVE: CASE EVENT DATE: 20250101
